FAERS Safety Report 21981879 (Version 1)
Quarter: 2023Q1

REPORT INFORMATION
  Report Type: Spontaneous
  Country: US (occurrence: US)
  Receive Date: 20230212
  Receipt Date: 20230212
  Transmission Date: 20230417
  Serious: No
  Sender: FDA-Public Use
  Company Number: US-BRISTOL-MYERS SQUIBB COMPANY-2023-020707

PATIENT
  Age: 66 Year
  Sex: Male
  Weight: 68.04 kg

DRUGS (1)
  1. SOTYKTU [Suspect]
     Active Substance: DEUCRAVACITINIB
     Indication: Psoriasis
     Dosage: DOSE : 6 MG;     FREQ : ONCE DAILY
     Route: 048
     Dates: start: 202301

REACTIONS (1)
  - Paraesthesia [Unknown]

NARRATIVE: CASE EVENT DATE: 20230207
